FAERS Safety Report 16386933 (Version 1)
Quarter: 2019Q2

REPORT INFORMATION
  Report Type: Other
  Country: RO (occurrence: RO)
  Receive Date: 20190604
  Receipt Date: 20190604
  Transmission Date: 20190711
  Serious: Yes (Other)
  Sender: FDA-Public Use
  Company Number: RO-CELLTRION INC.-2019RO021136

PATIENT

DRUGS (12)
  1. RITUXIMAB (UNKNOWN) [Suspect]
     Active Substance: RITUXIMAB
     Dosage: UNK
     Route: 065
     Dates: start: 20130704
  2. RITUXIMAB (UNKNOWN) [Suspect]
     Active Substance: RITUXIMAB
     Indication: B-CELL LYMPHOMA
     Dosage: UNK
     Route: 065
     Dates: start: 20180628
  3. RITUXIMAB (UNKNOWN) [Suspect]
     Active Substance: RITUXIMAB
     Dosage: UNK
     Route: 065
     Dates: start: 2018
  4. OXALIPLATIN. [Concomitant]
     Active Substance: OXALIPLATIN
  5. IFOSFAMIDE. [Concomitant]
     Active Substance: IFOSFAMIDE
     Indication: B-CELL LYMPHOMA
     Dosage: UNK
     Route: 065
     Dates: start: 2012, end: 2012
  6. CISPLATIN. [Concomitant]
     Active Substance: CISPLATIN
  7. CYTARABINE. [Concomitant]
     Active Substance: CYTARABINE
  8. ETOPOSIDE. [Concomitant]
     Active Substance: ETOPOSIDE
  9. RITUXIMAB (UNKNOWN) [Suspect]
     Active Substance: RITUXIMAB
     Dosage: UNK
     Route: 065
     Dates: start: 2012
  10. GEMCITABINE [Concomitant]
     Active Substance: GEMCITABINE\GEMCITABINE HYDROCHLORIDE
  11. CARBOPLATIN. [Concomitant]
     Active Substance: CARBOPLATIN
  12. DEXAMETHASONE. [Concomitant]
     Active Substance: DEXAMETHASONE

REACTIONS (8)
  - Off label use [Unknown]
  - Disease recurrence [Unknown]
  - Haemorrhoids [Unknown]
  - Aplasia [Recovered/Resolved]
  - White blood cell count increased [Unknown]
  - Platelet count increased [Unknown]
  - Intentional product use issue [Unknown]
  - Pallor [Unknown]

NARRATIVE: CASE EVENT DATE: 20121030
